FAERS Safety Report 8368419-4 (Version None)
Quarter: 2012Q2

REPORT INFORMATION
  Report Type: 
  Country: None (occurrence: None)
  Receive Date: 20120517
  Receipt Date: 20120504
  Transmission Date: 20120825
  Serious: Yes (Hospitalization, Other)
  Sender: FDA-Public Use
  Company Number: US-ELI_LILLY_AND_COMPANY-US201007007225

PATIENT
  Sex: Female

DRUGS (21)
  1. AVINZA [Concomitant]
  2. SIMVASTATIN [Concomitant]
     Dosage: UNK UNK, BID
  3. HUMIRA [Concomitant]
     Dosage: UNK, WEEKLY (1/W)
  4. LUNESTA [Concomitant]
     Dosage: 3 MG, DAILY (1/D)
  5. PROMETHAZINE HCL [Concomitant]
     Dosage: UNK, AS NEEDED
  6. PROZAC [Concomitant]
     Dosage: UNK, UNKNOWN
     Route: 065
  7. TRILIPIX [Concomitant]
     Dosage: 135 MG, QD
     Route: 065
  8. NUCYNTA [Concomitant]
     Indication: PAIN
     Dosage: 50 MG, BID
  9. ALPRAZOLAM [Concomitant]
     Dosage: 0.5 MG, 4/D
  10. METFORMIN HCL [Concomitant]
     Dosage: 1000 MG, QD
  11. FORTEO [Suspect]
     Dosage: 20 UG, DAILY (1/D)
  12. HYDROXYZINE HCL [Concomitant]
     Dosage: 25 MG, 3/D
  13. LISINOPRIL [Concomitant]
     Dosage: UNK, DAILY (1/D)
  14. LISINOPRIL AND HYDROCHLOROTHIAZIDE [Concomitant]
     Dosage: UNK UNK, QD
  15. LOVAZA [Concomitant]
     Dosage: UNK UNK, BID
  16. HYDROCODONE BITARTRATE + ACETAMINOPHEN [Concomitant]
     Dosage: UNK, AS NEEDED
  17. FORTEO [Suspect]
     Indication: OSTEOPOROSIS
     Dosage: 20 UG, DAILY (1/D)
     Dates: start: 20100101
  18. FORTEO [Suspect]
     Dosage: 20 UG, DAILY (1/D)
  19. ERGOCALCIFEROL [Concomitant]
     Dosage: 5000 IU, 3/W
  20. VISTARIL [Concomitant]
     Dosage: UNK, UNKNOWN
     Route: 065
  21. CALCIUM + VITAMIN D [Concomitant]

REACTIONS (19)
  - LACERATION [None]
  - ABDOMINAL DISCOMFORT [None]
  - OVERDOSE [None]
  - NAIL DISCOMFORT [None]
  - DRUG DOSE OMISSION [None]
  - ARTHRALGIA [None]
  - DEHYDRATION [None]
  - PAIN IN EXTREMITY [None]
  - MALAISE [None]
  - GROWING PAINS [None]
  - DIARRHOEA [None]
  - FALL [None]
  - MUSCLE INJURY [None]
  - HOSPITALISATION [None]
  - ASTHENIA [None]
  - JOINT CREPITATION [None]
  - VOMITING [None]
  - BLOOD PRESSURE ABNORMAL [None]
  - BONE PAIN [None]
